FAERS Safety Report 25062324 (Version 2)
Quarter: 2025Q2

REPORT INFORMATION
  Report Type: Spontaneous
  Country: US (occurrence: US)
  Receive Date: 20250311
  Receipt Date: 20250516
  Transmission Date: 20250716
  Serious: Yes (Other)
  Sender: PROCTER AND GAMBLE
  Company Number: US-PROCTER_AND_GAMBLE-PH25001594

PATIENT
  Age: 48 Year
  Sex: Female
  Weight: 71.66 kg

DRUGS (2)
  1. BISMUTH SUBSALICYLATE [Suspect]
     Active Substance: BISMUTH SUBSALICYLATE
     Indication: Dyspepsia
     Dosage: 15 MILLILITER, 1 ONLY
     Route: 048
     Dates: start: 20250224, end: 20250224
  2. SODIUM SALICYLATE [Suspect]
     Active Substance: SODIUM SALICYLATE
     Route: 048
     Dates: start: 20250224, end: 20250224

REACTIONS (10)
  - Urticaria [Recovered/Resolved]
  - Rash pruritic [Recovered/Resolved]
  - Lip swelling [Recovered/Resolved]
  - Dyspnoea [Recovered/Resolved]
  - Pharyngeal swelling [Recovered/Resolved]
  - Throat tightness [Recovered/Resolved]
  - Reaction to excipient [Recovered/Resolved]
  - Hypersensitivity [Recovered/Resolved]
  - Heart rate increased [Recovered/Resolved]
  - Blood pressure increased [Unknown]

NARRATIVE: CASE EVENT DATE: 20250224
